APPROVED DRUG PRODUCT: NUPRIN
Active Ingredient: IBUPROFEN
Strength: 200MG
Dosage Form/Route: TABLET;ORAL
Application: A072035 | Product #001
Applicant: BRISTOL MYERS PRODUCTS INC
Approved: Feb 16, 1988 | RLD: No | RS: No | Type: DISCN